FAERS Safety Report 14980045 (Version 1)
Quarter: 2018Q2

REPORT INFORMATION
  Report Type: Spontaneous
  Country: US (occurrence: US)
  Receive Date: 20180516
  Receipt Date: 20180516
  Transmission Date: 20180711
  Serious: No
  Sender: FDA-Public Use
  Company Number: None

PATIENT
  Age: 38 Year
  Sex: Female
  Weight: 60.75 kg

DRUGS (3)
  1. PROBIOTIC [Concomitant]
     Active Substance: PROBIOTICS NOS
  2. STELARA [Suspect]
     Active Substance: USTEKINUMAB
     Indication: CROHN^S DISEASE
     Dosage: 1 INJECTION, SUBCUTANEOUS, FREQUENCY: 8 WEEKS?
     Route: 058
     Dates: start: 20170620
  3. MULTIVITAMIN [Concomitant]
     Active Substance: VITAMINS

REACTIONS (5)
  - Neck pain [None]
  - Discomfort [None]
  - Vision blurred [None]
  - Migraine [None]
  - Paraesthesia [None]

NARRATIVE: CASE EVENT DATE: 20170710
